FAERS Safety Report 9326274 (Version 1)
Quarter: 2013Q2

REPORT INFORMATION
  Report Type: Spontaneous
  Country: US (occurrence: US)
  Receive Date: 20130604
  Receipt Date: 20130604
  Transmission Date: 20140414
  Serious: Yes (Hospitalization, Other)
  Sender: FDA-Public Use
  Company Number: US-SANOFI-AVENTIS-2013SA045410

PATIENT
  Age: 57 Year
  Sex: Female
  Weight: 58 kg

DRUGS (15)
  1. AUBAGIO [Suspect]
     Indication: MULTIPLE SCLEROSIS
     Route: 048
     Dates: start: 20130425, end: 20130501
  2. WARFARIN [Concomitant]
     Indication: ASTHMA
     Dosage: 2.5 MG TABLET 3DAYS IN WEEK AND 5 MG , REST OF THE WEEK
  3. TOPAMAX [Concomitant]
     Dosage: 1.5 MG. 2 TABLES IN A.M + 2 TABLETS AT BEDTIME
  4. DETROL [Concomitant]
  5. AMANTADINE [Concomitant]
  6. BACLOFEN [Concomitant]
  7. CLONAZEPAM [Concomitant]
  8. SEROQUEL [Concomitant]
  9. VITAMIN B12 [Concomitant]
  10. FOLIC ACID [Concomitant]
  11. VITAMIN D [Concomitant]
  12. SINGULAIR [Concomitant]
  13. SYMBICORT [Concomitant]
     Indication: ASTHMA
     Dosage: 160/4.5 2 PUFFS IN A.M + 2 PUFFS IN P.M
  14. PRO-AIR [Concomitant]
     Indication: ASTHMA
  15. OXYGEN [Concomitant]
     Indication: ASTHMA

REACTIONS (10)
  - Diverticulitis [Unknown]
  - Kidney infection [Recovered/Resolved]
  - Pollakiuria [Recovered/Resolved]
  - Chromaturia [Recovered/Resolved]
  - Chills [Recovered/Resolved]
  - Asthenia [Recovered/Resolved]
  - Headache [Not Recovered/Not Resolved]
  - Back pain [Not Recovered/Not Resolved]
  - Dizziness [Unknown]
  - Blood pressure decreased [Unknown]
